FAERS Safety Report 8206952-6 (Version None)
Quarter: 2012Q1

REPORT INFORMATION
  Report Type: 
  Country: None (occurrence: None)
  Receive Date: 20120314
  Receipt Date: 20120308
  Transmission Date: 20120608
  Serious: Yes (Other)
  Sender: FDA-Public Use
  Company Number: AU-JNJFOC-20120304673

PATIENT
  Sex: Male

DRUGS (2)
  1. NICORETTE [Suspect]
     Indication: SMOKING CESSATION THERAPY
     Dosage: FOR APPROXIMATELY ONE WEEK
     Route: 062
     Dates: start: 20120301
  2. NICORETTE [Suspect]
     Route: 062

REACTIONS (3)
  - CHEST PAIN [None]
  - NASOPHARYNGITIS [None]
  - DYSPNOEA [None]
